FAERS Safety Report 5734420-X (Version None)
Quarter: 2008Q2

REPORT INFORMATION
  Report Type: 
  Country: None (occurrence: None)
  Receive Date: 20080512
  Receipt Date: 20070531
  Transmission Date: 20081010
  Serious: No
  Sender: FDA-Public Use
  Company Number: A0653666A

PATIENT
  Sex: Male

DRUGS (3)
  1. RELAFEN [Suspect]
     Indication: OSTEOARTHRITIS
     Route: 048
  2. DIOVAN [Concomitant]
  3. ZANTAC [Concomitant]

REACTIONS (1)
  - DRUG SCREEN POSITIVE [None]
